FAERS Safety Report 10782615 (Version 3)
Quarter: 2015Q1

REPORT INFORMATION
  Report Type: Spontaneous
  Country: US (occurrence: US)
  Receive Date: 20150210
  Receipt Date: 20150331
  Transmission Date: 20150721
  Serious: Yes (Other)
  Sender: FDA-Public Use
  Company Number: US-PFIZER INC-2014363474

PATIENT
  Age: 70 Year
  Sex: Female

DRUGS (1)
  1. SUTENT [Suspect]
     Active Substance: SUNITINIB MALATE
     Indication: RENAL CELL CARCINOMA
     Dosage: 12.5 MG, CYCLIC (DAILY 4 WEEKS ON/2 WEEKS OFF)
     Route: 048

REACTIONS (3)
  - Constipation [Unknown]
  - Rectal haemorrhage [Unknown]
  - Proctalgia [Unknown]
